FAERS Safety Report 4506119-9 (Version None)
Quarter: 2004Q4

REPORT INFORMATION
  Report Type: 
  Country: None (occurrence: None)
  Receive Date: 20041025
  Receipt Date: 20040426
  Transmission Date: 20050328
  Serious: Yes (Other)
  Sender: FDA-Public Use
  Company Number: US-JNJFOC-20040405883

PATIENT
  Age: 32 Year
  Sex: Female
  Weight: 86.1834 kg

DRUGS (4)
  1. REMICADE [Suspect]
     Indication: CROHN'S DISEASE
     Dosage: 10 MG/KG, INTRAVENOUS
     Route: 042
     Dates: start: 20040426
  2. PREDNISONE [Concomitant]
  3. MERCAPTOPURINE [Concomitant]
  4. COLOZAL (BALSALAZIDE) [Concomitant]

REACTIONS (4)
  - HAEMATOCHEZIA [None]
  - HEADACHE [None]
  - HEART RATE INCREASED [None]
  - MALAISE [None]
